FAERS Safety Report 14166698 (Version 2)
Quarter: 2017Q4

REPORT INFORMATION
  Report Type: Report from Study
  Country: LB (occurrence: LB)
  Receive Date: 20171107
  Receipt Date: 20171204
  Transmission Date: 20180321
  Serious: Yes (Hospitalization)
  Sender: FDA-Public Use
  Company Number: PHHY2017LB131665

PATIENT
  Sex: Male

DRUGS (1)
  1. GLIVEC [Suspect]
     Active Substance: IMATINIB MESYLATE
     Indication: CHRONIC MYELOID LEUKAEMIA
     Dosage: 400 MG, QD
     Route: 048
     Dates: start: 2005

REACTIONS (6)
  - Vision blurred [Recovered/Resolved]
  - Cerebrovascular accident [Recovered/Resolved]
  - Intraocular pressure increased [Unknown]
  - Fall [Unknown]
  - Back pain [Not Recovered/Not Resolved]
  - Hyperglycaemia [Recovered/Resolved]
